FAERS Safety Report 4933195-1 (Version None)
Quarter: 2006Q1

REPORT INFORMATION
  Report Type: 
  Country: None (occurrence: None)
  Receive Date: 20060106
  Receipt Date: 20050829
  Transmission Date: 20060701
  Serious: No
  Sender: FDA-Public Use
  Company Number: 200511784BWH

PATIENT
  Age: 67 Year
  Sex: Male

DRUGS (8)
  1. LEVITRA [Suspect]
     Indication: ERECTILE DYSFUNCTION
     Dosage: 5 MG, OM, ORAL
     Route: 048
     Dates: start: 20050115, end: 20050731
  2. SEREVENT [Concomitant]
  3. FLOVENT [Concomitant]
  4. ALBUTEROL [Concomitant]
  5. LISINOPRIL [Concomitant]
  6. HYDROCHLOROTHIAZIDE [Concomitant]
  7. VERAPAMIL [Concomitant]
  8. METOPROLOL [Concomitant]

REACTIONS (1)
  - PAIN [None]
